FAERS Safety Report 20513194 (Version 1)
Quarter: 2022Q1

REPORT INFORMATION
  Report Type: Other
  Country: US (occurrence: None)
  Receive Date: 20220224
  Receipt Date: 20220224
  Transmission Date: 20220423
  Serious: No
  Sender: FDA-Public Use
  Company Number: US-ROCHE-3032311

PATIENT
  Age: 33 Year
  Sex: Female
  Weight: 143.01 kg

DRUGS (6)
  1. OCREVUS [Suspect]
     Active Substance: OCRELIZUMAB
     Indication: Relapsing-remitting multiple sclerosis
     Dosage: DATE OF TREATMENT: 08/FEB/2021, 16/JUN/2021, 16/AUG/2021, 18 /AUG/2021
     Route: 042
     Dates: start: 20210802
  2. OCREVUS [Suspect]
     Active Substance: OCRELIZUMAB
     Route: 042
  3. BENADRYL (UNK COUNTRY) [Concomitant]
  4. STEROIDPULS (UNK INGREDIENTS) [Concomitant]
  5. COPAXONE [Concomitant]
     Active Substance: GLATIRAMER ACETATE
  6. TECFIDERA [Concomitant]
     Active Substance: DIMETHYL FUMARATE
     Indication: Multiple sclerosis

REACTIONS (4)
  - COVID-19 [Recovered/Resolved]
  - Pruritus [Recovered/Resolved]
  - Urticaria [Recovered/Resolved]
  - Magnetic resonance imaging abnormal [Unknown]

NARRATIVE: CASE EVENT DATE: 20210802
